FAERS Safety Report 7853289-0 (Version None)
Quarter: 2011Q3

REPORT INFORMATION
  Report Type: 
  Country: None (occurrence: None)
  Receive Date: 20110915
  Receipt Date: 20110708
  Transmission Date: 20111222
  Serious: Yes (Other)
  Sender: FDA-Public Use
  Company Number: 2011028163

PATIENT
  Age: 60 Year
  Sex: Female
  Weight: 117 kg

DRUGS (17)
  1. HYDROMORPHONE HCL [Concomitant]
  2. OXYCODONE HCL [Concomitant]
  3. SENNA-MINT WAF [Concomitant]
  4. PRIVIGEN [Suspect]
  5. METHYLPREDNISOLONE [Concomitant]
  6. OMEPRAZOLE [Concomitant]
  7. SIMVASTATIN [Concomitant]
  8. PRIVIGEN [Suspect]
  9. PENTAMIDINE (PENTAMIDINE) [Concomitant]
  10. SULFAMETHOXAZOLE/TRIMETHOPRIM (BACTRIM /00086101/) [Concomitant]
  11. PRIVIGEN [Suspect]
     Indication: THROMBOCYTOPENIC PURPURA
     Dosage: SEE IMAGE
     Route: 042
     Dates: start: 20110328, end: 20110328
  12. PRIVIGEN [Suspect]
     Indication: SPLENECTOMY
     Dosage: SEE IMAGE
     Route: 042
     Dates: start: 20110328, end: 20110328
  13. PRIVIGEN [Suspect]
     Indication: THROMBOCYTOPENIC PURPURA
     Dosage: SEE IMAGE
     Route: 042
     Dates: start: 20110328, end: 20110328
  14. PRIVIGEN [Suspect]
     Indication: SPLENECTOMY
     Dosage: SEE IMAGE
     Route: 042
     Dates: start: 20110328, end: 20110328
  15. PRIVIGEN [Suspect]
     Indication: THROMBOCYTOPENIC PURPURA
     Dosage: SEE IMAGE
     Route: 042
     Dates: start: 20110328, end: 20110328
  16. PRIVIGEN [Suspect]
     Indication: SPLENECTOMY
     Dosage: SEE IMAGE
     Route: 042
     Dates: start: 20110328, end: 20110328
  17. PREDNISONE TAB [Concomitant]

REACTIONS (2)
  - HAEMOGLOBIN DECREASED [None]
  - ANTI-ERYTHROCYTE ANTIBODY POSITIVE [None]
